FAERS Safety Report 9739441 (Version 1)
Quarter: 2013Q4

REPORT INFORMATION
  Report Type: Spontaneous
  Country: US (occurrence: US)
  Receive Date: 20131209
  Receipt Date: 20131209
  Transmission Date: 20140711
  Serious: Yes (Hospitalization)
  Sender: FDA-Public Use
  Company Number: US-TEVA-449143USA

PATIENT
  Age: 79 Year
  Sex: Female

DRUGS (3)
  1. AMIODARONE [Suspect]
     Indication: ATRIAL FLUTTER
     Route: 042
  2. AMIODARONE [Suspect]
     Indication: ATRIAL FLUTTER
     Route: 048
  3. AMIODARONE [Suspect]
     Indication: ATRIAL FLUTTER
     Route: 048

REACTIONS (3)
  - Neurotoxicity [Recovering/Resolving]
  - Ataxia [Recovering/Resolving]
  - Paraesthesia [Unknown]
